FAERS Safety Report 6894685-8 (Version None)
Quarter: 2010Q3

REPORT INFORMATION
  Report Type: 
  Country: None (occurrence: None)
  Receive Date: 20100708
  Receipt Date: 20100408
  Transmission Date: 20110219
  Serious: Yes (Other)
  Sender: FDA-Public Use
  Company Number: 2010047090

PATIENT
  Age: 61 Year
  Sex: Male
  Weight: 156 kg

DRUGS (1)
  1. CHANTIX [Suspect]
     Indication: SMOKING CESSATION THERAPY
     Dosage: 0.5 MG, 1X/DAY
     Dates: start: 20100329, end: 20100404

REACTIONS (2)
  - ABNORMAL DREAMS [None]
  - HALLUCINATION [None]
